FAERS Safety Report 13014306 (Version 1)
Quarter: 2016Q4

REPORT INFORMATION
  Report Type: Spontaneous
  Country: US (occurrence: US)
  Receive Date: 20161209
  Receipt Date: 20161209
  Transmission Date: 20170207
  Serious: No
  Sender: FDA-Public Use
  Company Number: US-CHIESI USA INC.-US-2016CHI001584

PATIENT

DRUGS (2)
  1. BETHKIS [Suspect]
     Active Substance: TOBRAMYCIN
     Indication: BRONCHIECTASIS
  2. BETHKIS [Suspect]
     Active Substance: TOBRAMYCIN
     Indication: OFF LABEL USE
     Dosage: 300 MG, BID
     Route: 055
     Dates: start: 20160503

REACTIONS (6)
  - Dysphonia [Unknown]
  - Sensory disturbance [Unknown]
  - Back pain [Unknown]
  - Headache [Unknown]
  - Off label use [Not Recovered/Not Resolved]
  - Upper respiratory tract congestion [Unknown]

NARRATIVE: CASE EVENT DATE: 20160503
